FAERS Safety Report 15984365 (Version 1)
Quarter: 2019Q1

REPORT INFORMATION
  Report Type: Spontaneous
  Country: US (occurrence: US)
  Receive Date: 20190220
  Receipt Date: 20190220
  Transmission Date: 20190418
  Serious: No
  Sender: FDA-Public Use
  Company Number: PHEH2019US007219

PATIENT
  Sex: Female
  Weight: 68.4 kg

DRUGS (1)
  1. ZARXIO [Suspect]
     Active Substance: FILGRASTIM-SNDZ
     Indication: WHITE BLOOD CELL COUNT ABNORMAL
     Dosage: UNK
     Route: 065

REACTIONS (1)
  - Prescription drug used without a prescription [Unknown]
